FAERS Safety Report 9498164 (Version 1)
Quarter: 2013Q3

REPORT INFORMATION
  Report Type: Report from Study
  Country: AR (occurrence: AR)
  Receive Date: 20130904
  Receipt Date: 20130904
  Transmission Date: 20140515
  Serious: Yes (Other)
  Sender: FDA-Public Use
  Company Number: AR-ROCHE-1269478

PATIENT
  Sex: Female

DRUGS (3)
  1. RANIBIZUMAB [Suspect]
     Indication: MACULOPATHY
     Route: 050
     Dates: start: 201206
  2. RANIBIZUMAB [Suspect]
     Route: 050
     Dates: start: 2012, end: 2012
  3. INSULIN [Concomitant]

REACTIONS (2)
  - Blood glucose increased [Recovered/Resolved]
  - Tachycardia [Recovered/Resolved]
